FAERS Safety Report 22607587 (Version 1)
Quarter: 2023Q2

REPORT INFORMATION
  Report Type: Report from Study
  Country: US (occurrence: US)
  Receive Date: 20230616
  Receipt Date: 20230616
  Transmission Date: 20230721
  Serious: Yes (Other)
  Sender: FDA-Public Use
  Company Number: US-ABBVIE-5289656

PATIENT
  Sex: Male
  Weight: 68 kg

DRUGS (1)
  1. SKYRIZI [Suspect]
     Active Substance: RISANKIZUMAB-RZAA
     Indication: Psoriasis
     Dosage: FORM STRENGTH 150 MILLIGRAM, DRUG STARTED IN 2019
     Route: 058
     Dates: end: 202305

REACTIONS (5)
  - Arthritis [Recovered/Resolved]
  - Arthropathy [Recovered/Resolved]
  - Cartilage injury [Recovered/Resolved]
  - Blood sodium decreased [Recovered/Resolved]
  - Myalgia [Not Recovered/Not Resolved]

NARRATIVE: CASE EVENT DATE: 20220101
